FAERS Safety Report 18079890 (Version 1)
Quarter: 2020Q3

REPORT INFORMATION
  Report Type: Spontaneous
  Country: US (occurrence: US)
  Receive Date: 20200728
  Receipt Date: 20200728
  Transmission Date: 20201103
  Serious: Yes (Hospitalization)
  Sender: FDA-Public Use
  Company Number: None

PATIENT
  Sex: Male

DRUGS (4)
  1. CIMZIA [Suspect]
     Active Substance: CERTOLIZUMAB PEGOL
     Indication: CROHN^S DISEASE
     Dosage: FREQUENCY: EVERY 4 WEEKS
     Route: 058
     Dates: start: 202004
  2. CEPHALEXIN. [Concomitant]
     Active Substance: CEPHALEXIN
  3. AMOXICILLIN. [Concomitant]
     Active Substance: AMOXICILLIN
  4. OSELTAMIVIR [Concomitant]
     Active Substance: OSELTAMIVIR

REACTIONS (2)
  - Pain [None]
  - Abdominal pain [None]
